FAERS Safety Report 9928469 (Version 1)
Quarter: 2014Q1

REPORT INFORMATION
  Report Type: Report from Study
  Country: CN (occurrence: CN)
  Receive Date: 20140227
  Receipt Date: 20140227
  Transmission Date: 20141002
  Serious: Yes (Death, Other)
  Sender: FDA-Public Use
  Company Number: CN-ASTELLAS-2014US002090

PATIENT
  Age: 44 Year
  Sex: Male

DRUGS (1)
  1. ERLOTINIB TABLET [Suspect]
     Indication: NON-SMALL CELL LUNG CANCER
     Dosage: 150 MG, UID/QD
     Route: 048
     Dates: start: 20120423

REACTIONS (4)
  - Upper airway obstruction [Fatal]
  - Cerebrovascular accident [Unknown]
  - Muscle spasms [Unknown]
  - Cough [Recovering/Resolving]
